FAERS Safety Report 10232821 (Version 2)
Quarter: 2014Q2

REPORT INFORMATION
  Report Type: Report from Study
  Country: CA (occurrence: CA)
  Receive Date: 20140612
  Receipt Date: 20140612
  Transmission Date: 20141212
  Serious: Yes (Death)
  Sender: FDA-Public Use
  Company Number: CA-INCYTE CORPORATION-2013IN002492

PATIENT
  Sex: Male

DRUGS (2)
  1. JAKAVI [Suspect]
     Indication: MYELOFIBROSIS
     Dosage: 10 MG, BID
     Route: 048
     Dates: start: 20131016
  2. JAKAVI [Suspect]
     Dosage: 20 MG, BID
     Route: 048
     Dates: start: 20131017

REACTIONS (2)
  - Death [Fatal]
  - White blood cell count increased [Unknown]
